FAERS Safety Report 19580264 (Version 2)
Quarter: 2021Q3

REPORT INFORMATION
  Report Type: Spontaneous
  Country: US (occurrence: US)
  Receive Date: 20210719
  Receipt Date: 20210907
  Transmission Date: 20211014
  Serious: No
  Sender: FDA-Public Use
  Company Number: US-BAYER-2021-172332

PATIENT
  Age: 54 Year
  Sex: Female
  Weight: 74.8 kg

DRUGS (1)
  1. CLIMARA PRO [Suspect]
     Active Substance: ESTRADIOL\LEVONORGESTREL
     Indication: HORMONE REPLACEMENT THERAPY
     Dosage: 1 DF, OW
     Dates: start: 20210628

REACTIONS (3)
  - Product administration interrupted [None]
  - Abdominal pain [None]
  - Product adhesion issue [None]

NARRATIVE: CASE EVENT DATE: 202106
